FAERS Safety Report 7884767-6 (Version None)
Quarter: 2011Q4

REPORT INFORMATION
  Report Type: 
  Country: None (occurrence: None)
  Receive Date: 20111102
  Receipt Date: 20111031
  Transmission Date: 20120403
  Serious: No
  Sender: FDA-Public Use
  Company Number: US-TEVA-307418USA

PATIENT
  Sex: Female

DRUGS (1)
  1. ENJUVIA [Suspect]
     Indication: MENOPAUSAL SYMPTOMS
     Route: 048

REACTIONS (3)
  - MENOPAUSAL SYMPTOMS [None]
  - INSOMNIA [None]
  - DRUG EFFECT DECREASED [None]
